FAERS Safety Report 25266466 (Version 1)
Quarter: 2025Q2

REPORT INFORMATION
  Report Type: Spontaneous
  Country: IT (occurrence: IT)
  Receive Date: 20250505
  Receipt Date: 20250505
  Transmission Date: 20250716
  Serious: Yes (Other)
  Sender: TEVA
  Company Number: IT-002147023-NVSC2025IT052840

PATIENT
  Age: 39 Year
  Sex: Female

DRUGS (3)
  1. LETROZOLE [Suspect]
     Active Substance: LETROZOLE
     Indication: Breast cancer metastatic
     Dosage: QD (DAY1-21; EACH 28 DAYS)
     Route: 065
     Dates: start: 202012
  2. ZOLEDRONIC ACID [Suspect]
     Active Substance: ZOLEDRONIC ACID
     Indication: Breast cancer metastatic
     Dosage: QD (EACH 28 DAYS DAILY)
     Route: 065
     Dates: start: 202012
  3. RIBOCICLIB [Suspect]
     Active Substance: RIBOCICLIB
     Indication: Breast cancer metastatic
     Dosage: QD (DAY1-21; EACH 28 DAYS)
     Route: 065
     Dates: start: 202012

REACTIONS (4)
  - Haematotoxicity [Unknown]
  - Hepatic lesion [Unknown]
  - Lymphadenopathy mediastinal [Unknown]
  - Asthenia [Unknown]

NARRATIVE: CASE EVENT DATE: 20210401
